FAERS Safety Report 5512368-3 (Version None)
Quarter: 2007Q4

REPORT INFORMATION
  Report Type: 
  Country: None (occurrence: None)
  Receive Date: 20071107
  Receipt Date: 20071029
  Transmission Date: 20080405
  Serious: Yes (Hospitalization, Other)
  Sender: FDA-Public Use
  Company Number: 062-C5013-07051167

PATIENT
  Age: 82 Year
  Sex: Female
  Weight: 61 kg

DRUGS (7)
  1. CC-5013 (LENALIDOMIDE) (CAPSULES) [Suspect]
     Indication: MULTIPLE MYELOMA
     Dosage: 25 MG DAILY ORAL
     Route: 048
     Dates: start: 20070412, end: 20070427
  2. ARANESP [Concomitant]
  3. NOVALIN [Concomitant]
  4. ALLOPURINOL [Concomitant]
  5. BONDRONAT (IBANDRONIC ACID) [Concomitant]
  6. CYMT (MOXONIDINE) [Concomitant]
  7. ATACAND [Concomitant]

REACTIONS (15)
  - ACQUIRED DIAPHRAGMATIC EVENTRATION [None]
  - BLOOD PRESSURE INADEQUATELY CONTROLLED [None]
  - CARDIOMEGALY [None]
  - CEREBRAL ATROPHY [None]
  - CHOLESTASIS [None]
  - CONVULSION [None]
  - DEHYDRATION [None]
  - GENERAL PHYSICAL HEALTH DETERIORATION [None]
  - HEPATIC FAILURE [None]
  - METABOLIC DISORDER [None]
  - OSTEOLYSIS [None]
  - PANCREATIC DISORDER [None]
  - PLEURAL EFFUSION [None]
  - PNEUMONIA [None]
  - RENAL FAILURE [None]
